FAERS Safety Report 25192652 (Version 2)
Quarter: 2025Q2

REPORT INFORMATION
  Report Type: Spontaneous
  Country: US (occurrence: US)
  Receive Date: 20250414
  Receipt Date: 20250417
  Transmission Date: 20250716
  Serious: Yes (Life-Threatening, Hospitalization, Other)
  Sender: RANBAXY
  Company Number: US-SUN PHARMACEUTICAL INDUSTRIES LTD-2025R1-503154

PATIENT
  Age: 35 Year
  Sex: Female

DRUGS (6)
  1. ISOSORBIDE [Suspect]
     Active Substance: ISOSORBIDE
     Indication: Pulmonary artery catheterisation
     Route: 065
  2. METOPROLOL [Suspect]
     Active Substance: METOPROLOL
     Indication: Pulmonary artery catheterisation
     Route: 065
  3. DOBUTAMINE [Suspect]
     Active Substance: DOBUTAMINE HYDROCHLORIDE
     Indication: Pulmonary artery catheterisation
     Route: 065
  4. ENOXAPARIN SODIUM [Suspect]
     Active Substance: ENOXAPARIN SODIUM
     Indication: Pulmonary artery catheterisation
     Route: 065
  5. HYDRALAZINE [Suspect]
     Active Substance: HYDRALAZINE HYDROCHLORIDE
     Indication: Pulmonary artery catheterisation
     Route: 065
  6. HEPARIN [Suspect]
     Active Substance: HEPARIN SODIUM
     Indication: Pulmonary artery catheterisation
     Route: 065

REACTIONS (4)
  - Caesarean section [Unknown]
  - Extrasystoles [Unknown]
  - Premature delivery [Unknown]
  - Exposure during pregnancy [Unknown]
